FAERS Safety Report 8181658-0 (Version None)
Quarter: 2012Q1

REPORT INFORMATION
  Report Type: 
  Country: None (occurrence: None)
  Receive Date: 20120302
  Receipt Date: 20110629
  Transmission Date: 20120608
  Serious: Yes (Other)
  Sender: FDA-Public Use
  Company Number: BR-US-EMD SERONO, INC.-7063833

PATIENT
  Sex: Male

DRUGS (5)
  1. METFORMIN HCL [Concomitant]
  2. TAMIRAM (LEVOFLOXACIN) [Concomitant]
  3. ACETAMINOPHEN [Concomitant]
  4. REBIF [Suspect]
     Indication: RELAPSING-REMITTING MULTIPLE SCLEROSIS
     Dates: start: 20070817
  5. ENALAPRIL MALEATE [Concomitant]

REACTIONS (5)
  - PAIN [None]
  - RESPIRATORY TRACT INFECTION [None]
  - PYREXIA [None]
  - TREMOR [None]
  - INFLUENZA LIKE ILLNESS [None]
